FAERS Safety Report 6661992-3 (Version None)
Quarter: 2010Q1

REPORT INFORMATION
  Report Type: 
  Country: None (occurrence: None)
  Receive Date: 20100331
  Receipt Date: 20091201
  Transmission Date: 20100710
  Serious: Yes (Other)
  Sender: FDA-Public Use
  Company Number: US-BRISTOL-MYERS SQUIBB COMPANY-14865471

PATIENT
  Sex: Female

DRUGS (5)
  1. ERBITUX [Suspect]
     Indication: TONSIL CANCER
     Dosage: 556 MG 7X8 DAYS
     Route: 042
     Dates: start: 20091021, end: 20091021
  2. BENADRYL [Concomitant]
     Indication: PREMEDICATION
  3. DECADRON [Concomitant]
     Indication: PREMEDICATION
  4. ZOFRAN [Concomitant]
     Indication: PREMEDICATION
  5. TAGAMET [Concomitant]
     Indication: PREMEDICATION

REACTIONS (3)
  - PHARYNGEAL OEDEMA [None]
  - SWOLLEN TONGUE [None]
  - URTICARIA [None]
